FAERS Safety Report 8617405-5 (Version None)
Quarter: 2012Q3

REPORT INFORMATION
  Report Type: 
  Country: None (occurrence: None)
  Receive Date: 20120823
  Receipt Date: 20120815
  Transmission Date: 20120928
  Serious: Yes (Hospitalization, Other)
  Sender: FDA-Public Use
  Company Number: US-009507513-1202USA01415

PATIENT

DRUGS (13)
  1. ASACOL [Concomitant]
     Indication: CROHN'S DISEASE
     Dosage: UNK
     Dates: start: 19980501, end: 20050601
  2. FOSAMAX PLUS D [Suspect]
     Indication: OSTEOPOROSIS
  3. FOSAMAX [Suspect]
     Indication: OSTEOPENIA
     Dosage: 10 MG, UNK
     Route: 048
     Dates: start: 19980901, end: 20011025
  4. FOSAMAX [Suspect]
     Indication: OSTEOPOROSIS
     Dosage: 70 MG, UNK
     Route: 048
     Dates: start: 20011025, end: 20080725
  5. VITAMINS (UNSPECIFIED) [Concomitant]
     Dosage: UNK
     Dates: start: 19600101
  6. COMPAZINE [Concomitant]
     Indication: NAUSEA
     Dosage: UNK
     Dates: start: 19980901
  7. CHLORDIAZEPOXIDE [Concomitant]
     Indication: BLADDER SPASM
     Dosage: UNK
     Dates: start: 19600101, end: 20081001
  8. FOSAMAX PLUS D [Suspect]
     Indication: OSTEOPENIA
     Dosage: 70 MG, UNK
     Route: 048
     Dates: start: 20070602, end: 20080725
  9. ALENDRONATE SODIUM [Suspect]
     Indication: OSTEOPOROSIS
     Dosage: 70 MG, UNK
     Route: 048
     Dates: start: 20080725, end: 20100207
  10. CALCIUM CARBONATE [Concomitant]
     Dosage: UNK
  11. CORTICOSTEROIDS (UNSPECIFIED) [Concomitant]
     Dosage: UNK
     Dates: start: 19670101
  12. DIDRONEL [Suspect]
     Indication: OSTEOPENIA
     Dosage: UNK
     Dates: start: 19980521, end: 19980620
  13. VITAMIN B-12 [Concomitant]
     Dosage: UNK
     Dates: start: 19600101

REACTIONS (20)
  - THROMBOSIS [None]
  - VITAMIN D DEFICIENCY [None]
  - NAUSEA [None]
  - SQUAMOUS CELL CARCINOMA [None]
  - ASTHMA [None]
  - WRIST FRACTURE [None]
  - RIB FRACTURE [None]
  - HYPERTENSION [None]
  - CYSTITIS [None]
  - HORMONE LEVEL ABNORMAL [None]
  - URINARY TRACT INFECTION [None]
  - STRESS FRACTURE [None]
  - BLOOD CHOLESTEROL INCREASED [None]
  - SINUSITIS [None]
  - OESOPHAGEAL DILATATION [None]
  - FEMUR FRACTURE [None]
  - EYE OPERATION [None]
  - ARTHRALGIA [None]
  - SEASONAL ALLERGY [None]
  - NEPHROLITHIASIS [None]
